FAERS Safety Report 10035938 (Version 1)
Quarter: 2014Q1

REPORT INFORMATION
  Report Type: Spontaneous
  Country: CN (occurrence: CN)
  Receive Date: 20140325
  Receipt Date: 20140325
  Transmission Date: 20141002
  Serious: Yes (Other)
  Sender: FDA-Public Use
  Company Number: CN-GLAXOSMITHKLINE-B0978688A

PATIENT
  Age: 11 Year
  Sex: Female
  Weight: 40 kg

DRUGS (1)
  1. FLIXONASE [Suspect]
     Indication: RHINITIS
     Route: 045
     Dates: start: 2013, end: 20140310

REACTIONS (2)
  - Henoch-Schonlein purpura [Not Recovered/Not Resolved]
  - Off label use [Unknown]
